FAERS Safety Report 4781467-6 (Version None)
Quarter: 2005Q3

REPORT INFORMATION
  Report Type: 
  Country: None (occurrence: None)
  Receive Date: 20050927
  Receipt Date: 20050916
  Transmission Date: 20060218
  Serious: Yes (Other)
  Sender: FDA-Public Use
  Company Number: 2005130321

PATIENT
  Age: 56 Year
  Sex: Male

DRUGS (4)
  1. ATORVASTATIN CALCIUM [Suspect]
     Indication: ILL-DEFINED DISORDER
     Dosage: 10 MG (1 D)
  2. NOCTAMID (LORMETAZEPAM) [Concomitant]
  3. APROVEL (IRBESARTAN) [Concomitant]
  4. CELECTOL [Concomitant]

REACTIONS (3)
  - BLOOD CHOLESTEROL INCREASED [None]
  - GAMMA-GLUTAMYLTRANSFERASE INCREASED [None]
  - RENAL IMPAIRMENT [None]
